FAERS Safety Report 11073220 (Version 2)
Quarter: 2015Q2

REPORT INFORMATION
  Report Type: Spontaneous
  Country: FI (occurrence: FI)
  Receive Date: 20150428
  Receipt Date: 20150528
  Transmission Date: 20150821
  Serious: Yes (Other)
  Sender: FDA-Public Use
  Company Number: FI-PFIZER INC-2015139755

PATIENT
  Age: 43 Year
  Sex: Female

DRUGS (2)
  1. SIRDALUD [Concomitant]
     Active Substance: TIZANIDINE
     Dosage: 4 MG 1X 1-3 IF NEEDED
  2. CHAMPIX [Suspect]
     Active Substance: VARENICLINE TARTRATE
     Indication: SMOKING CESSATION THERAPY
     Dosage: 1 TABLET, 2X/DAY
     Route: 048
     Dates: start: 20141130, end: 20141222

REACTIONS (15)
  - Weight increased [Recovering/Resolving]
  - Panic reaction [Recovering/Resolving]
  - Musculoskeletal pain [Recovering/Resolving]
  - Fear [Recovering/Resolving]
  - Hyperhidrosis [Recovering/Resolving]
  - Palpitations [Recovering/Resolving]
  - Headache [Recovering/Resolving]
  - Dizziness [Recovering/Resolving]
  - Tremor [Recovering/Resolving]
  - Neck pain [Recovering/Resolving]
  - Anxiety [Recovering/Resolving]
  - Tension [Recovering/Resolving]
  - Dry mouth [Recovering/Resolving]
  - Suffocation feeling [Recovering/Resolving]
  - Fatigue [Recovering/Resolving]

NARRATIVE: CASE EVENT DATE: 201411
